FAERS Safety Report 24841472 (Version 2)
Quarter: 2025Q1

REPORT INFORMATION
  Report Type: Spontaneous
  Country: US (occurrence: US)
  Receive Date: 20250114
  Receipt Date: 20250214
  Transmission Date: 20250409
  Serious: No
  Sender: PFIZER
  Company Number: US-PFIZER INC-202500007137

PATIENT
  Age: 22 Year
  Sex: Female

DRUGS (9)
  1. CIBINQO [Suspect]
     Active Substance: ABROCITINIB
     Dosage: 100 MG, 1X/DAY
     Route: 048
     Dates: start: 20241218
  2. COLLAGEN [Concomitant]
     Active Substance: COLLAGEN
  3. METOPROLOL TARTRATE [Concomitant]
     Active Substance: METOPROLOL TARTRATE
  4. CETIRIZINE [Concomitant]
     Active Substance: CETIRIZINE HYDROCHLORIDE
  5. IBUPROFEN [Concomitant]
     Active Substance: IBUPROFEN
  6. TYLENOL [Concomitant]
     Active Substance: ACETAMINOPHEN
  7. ADVIL [Concomitant]
     Active Substance: IBUPROFEN
  8. VITAMIN C [Concomitant]
     Active Substance: ASCORBIC ACID
  9. BIOTIN [Concomitant]
     Active Substance: BIOTIN

REACTIONS (4)
  - Infection [Recovering/Resolving]
  - Headache [Recovering/Resolving]
  - Nausea [Recovering/Resolving]
  - Vomiting [Recovering/Resolving]
